FAERS Safety Report 21049544 (Version 1)
Quarter: 2022Q3

REPORT INFORMATION
  Report Type: Spontaneous
  Country: US (occurrence: None)
  Receive Date: 20220706
  Receipt Date: 20220706
  Transmission Date: 20221027
  Serious: No
  Sender: FDA-Public Use
  Company Number: None

PATIENT
  Age: 20 Year
  Sex: Female
  Weight: 67.5 kg

DRUGS (2)
  1. ETONOGESTREL/ETHINYL ESTRADIOL [Suspect]
     Active Substance: ETHINYL ESTRADIOL\ETONOGESTREL
  2. ELURYNG [Suspect]
     Active Substance: ETHINYL ESTRADIOL\ETONOGESTREL

REACTIONS (1)
  - Rash pruritic [None]

NARRATIVE: CASE EVENT DATE: 20210601
